FAERS Safety Report 13995259 (Version 1)
Quarter: 2017Q3

REPORT INFORMATION
  Report Type: Report from Study
  Country: US (occurrence: US)
  Receive Date: 20170921
  Receipt Date: 20170921
  Transmission Date: 20171128
  Serious: Yes (Hospitalization)
  Sender: FDA-Public Use
  Company Number: US-ROCHE-1994555

PATIENT
  Age: 78 Year
  Sex: Male
  Weight: 76.95 kg

DRUGS (40)
  1. VENETOCLAX. [Suspect]
     Active Substance: VENETOCLAX
     Indication: DIFFUSE LARGE B-CELL LYMPHOMA
     Dosage: ON DAYS 3-12 IN CYCLE 1, AND DAYS 1-10 WITH ALL SUBSEQUENT CYCLES
     Route: 048
     Dates: start: 20170811, end: 20170818
  2. DOXORUBICIN HYDROCHLORIDE. [Suspect]
     Active Substance: DOXORUBICIN HYDROCHLORIDE
     Dosage: TIME: 07:01
     Route: 042
     Dates: start: 20170812
  3. VINCRISTINE SULFATE. [Suspect]
     Active Substance: VINCRISTINE SULFATE
     Dosage: TIME: 07:20
     Route: 042
     Dates: start: 20170810
  4. CYCLOPHOSPHAMIDE. [Suspect]
     Active Substance: CYCLOPHOSPHAMIDE
     Indication: DIFFUSE LARGE B-CELL LYMPHOMA
     Dosage: GIVEN FOR A TOTAL OF 6 CYCLES
     Route: 042
     Dates: start: 20170813
  5. ETOPOSIDE. [Suspect]
     Active Substance: ETOPOSIDE
     Dosage: TIME: 18:50
     Route: 042
     Dates: start: 20170811
  6. ETOPOSIDE. [Suspect]
     Active Substance: ETOPOSIDE
     Dosage: TIME: 20:00
     Route: 042
     Dates: start: 20170812
  7. DOXORUBICIN HYDROCHLORIDE. [Suspect]
     Active Substance: DOXORUBICIN HYDROCHLORIDE
     Indication: DIFFUSE LARGE B-CELL LYMPHOMA
     Dosage: GIVEN FOR A TOTAL OF 6 CYCLES?TIME: 21:30
     Route: 042
     Dates: start: 20170809
  8. VINCRISTINE SULFATE. [Suspect]
     Active Substance: VINCRISTINE SULFATE
     Dosage: TIME: 22:05
     Route: 042
     Dates: start: 20170810
  9. VINCRISTINE SULFATE. [Suspect]
     Active Substance: VINCRISTINE SULFATE
     Dosage: TIME: 18:50
     Route: 042
     Dates: start: 20170811
  10. ETOPOSIDE. [Suspect]
     Active Substance: ETOPOSIDE
     Dosage: TIME: 19:08
     Route: 042
     Dates: start: 20170810
  11. ETOPOSIDE. [Suspect]
     Active Substance: ETOPOSIDE
     Dosage: TIME: 07:20
     Route: 042
     Dates: start: 20170811
  12. ETOPOSIDE. [Suspect]
     Active Substance: ETOPOSIDE
     Dosage: TIME: 07:01
     Route: 042
     Dates: start: 20170812
  13. ETOPOSIDE. [Suspect]
     Active Substance: ETOPOSIDE
     Dosage: TIME: 07:30
     Route: 042
     Dates: start: 20170813
  14. ETOPOSIDE. [Suspect]
     Active Substance: ETOPOSIDE
     Dosage: TIME: 19:45
     Route: 042
     Dates: start: 20170813
  15. VINCRISTINE SULFATE. [Suspect]
     Active Substance: VINCRISTINE SULFATE
     Dosage: TIME: 07:20
     Route: 042
     Dates: start: 20170811
  16. VINCRISTINE SULFATE. [Suspect]
     Active Substance: VINCRISTINE SULFATE
     Dosage: TIME: 07:30
     Route: 042
     Dates: start: 20170813
  17. RITUXIMAB. [Suspect]
     Active Substance: RITUXIMAB
     Indication: DIFFUSE LARGE B-CELL LYMPHOMA
     Dosage: ON DAY 1 OF EACH CYCLE; THE FIRST RITUXIMAB INFUSION SHOULD BE STARTED AT 50 MG/HR, AND INCREASED IN
     Route: 042
     Dates: start: 20170809
  18. ETOPOSIDE. [Suspect]
     Active Substance: ETOPOSIDE
     Indication: DIFFUSE LARGE B-CELL LYMPHOMA
     Dosage: GIVEN FOR A TOTAL OF 6 CYCLES?TIME: 21:30
     Route: 042
     Dates: start: 20170809
  19. ETOPOSIDE. [Suspect]
     Active Substance: ETOPOSIDE
     Dosage: TIME: 07:20
     Route: 042
     Dates: start: 20170810
  20. ETOPOSIDE. [Suspect]
     Active Substance: ETOPOSIDE
     Dosage: TIME: 22:04
     Route: 042
     Dates: start: 20170811
  21. DOXORUBICIN HYDROCHLORIDE. [Suspect]
     Active Substance: DOXORUBICIN HYDROCHLORIDE
     Dosage: TIME: 07:20
     Route: 042
     Dates: start: 20170810
  22. DOXORUBICIN HYDROCHLORIDE. [Suspect]
     Active Substance: DOXORUBICIN HYDROCHLORIDE
     Dosage: TIME: 19:45
     Route: 042
     Dates: start: 20170813
  23. VINCRISTINE SULFATE. [Suspect]
     Active Substance: VINCRISTINE SULFATE
     Dosage: TIME: 22:04
     Route: 042
     Dates: start: 20170811
  24. VINCRISTINE SULFATE. [Suspect]
     Active Substance: VINCRISTINE SULFATE
     Dosage: TIME: 07:01
     Route: 042
     Dates: start: 20170812
  25. ETOPOSIDE. [Suspect]
     Active Substance: ETOPOSIDE
     Dosage: TIME: 22:27
     Route: 042
     Dates: start: 20170812
  26. DOXORUBICIN HYDROCHLORIDE. [Suspect]
     Active Substance: DOXORUBICIN HYDROCHLORIDE
     Dosage: TIME: 19:08
     Route: 042
     Dates: start: 20170810
  27. DOXORUBICIN HYDROCHLORIDE. [Suspect]
     Active Substance: DOXORUBICIN HYDROCHLORIDE
     Dosage: TIME: 07:20
     Route: 042
     Dates: start: 20170811
  28. DOXORUBICIN HYDROCHLORIDE. [Suspect]
     Active Substance: DOXORUBICIN HYDROCHLORIDE
     Dosage: TIME: 18:50
     Route: 042
     Dates: start: 20170811
  29. DOXORUBICIN HYDROCHLORIDE. [Suspect]
     Active Substance: DOXORUBICIN HYDROCHLORIDE
     Dosage: TIME: 22:27
     Route: 042
     Dates: start: 20170812
  30. VINCRISTINE SULFATE. [Suspect]
     Active Substance: VINCRISTINE SULFATE
     Dosage: TIME: 22:27
     Route: 042
     Dates: start: 20170812
  31. VINCRISTINE SULFATE. [Suspect]
     Active Substance: VINCRISTINE SULFATE
     Dosage: TIME: 19:45
     Route: 042
     Dates: start: 20170813
  32. ETOPOSIDE. [Suspect]
     Active Substance: ETOPOSIDE
     Dosage: TIME: 22:05
     Route: 042
     Dates: start: 20170810
  33. DOXORUBICIN HYDROCHLORIDE. [Suspect]
     Active Substance: DOXORUBICIN HYDROCHLORIDE
     Dosage: TIME: 22:05
     Route: 042
     Dates: start: 20170810
  34. DOXORUBICIN HYDROCHLORIDE. [Suspect]
     Active Substance: DOXORUBICIN HYDROCHLORIDE
     Dosage: TIME: 22:04
     Route: 042
     Dates: start: 20170811
  35. DOXORUBICIN HYDROCHLORIDE. [Suspect]
     Active Substance: DOXORUBICIN HYDROCHLORIDE
     Dosage: TIME: 07:30
     Route: 042
     Dates: start: 20170813
  36. VINCRISTINE SULFATE. [Suspect]
     Active Substance: VINCRISTINE SULFATE
     Dosage: TIME: 19:08
     Route: 042
     Dates: start: 20170810
  37. PREDNISONE. [Suspect]
     Active Substance: PREDNISONE
     Indication: DIFFUSE LARGE B-CELL LYMPHOMA
     Dosage: GIVEN FOR A TOTAL OF 6 CYCLES
     Route: 048
  38. DOXORUBICIN HYDROCHLORIDE. [Suspect]
     Active Substance: DOXORUBICIN HYDROCHLORIDE
     Dosage: TIME: 20:00
     Route: 042
     Dates: start: 20170812
  39. VINCRISTINE SULFATE. [Suspect]
     Active Substance: VINCRISTINE SULFATE
     Indication: DIFFUSE LARGE B-CELL LYMPHOMA
     Dosage: GIVEN FOR A TOTAL OF 6 CYCLES?TIME: 21:30
     Route: 042
     Dates: start: 20170809
  40. VINCRISTINE SULFATE. [Suspect]
     Active Substance: VINCRISTINE SULFATE
     Dosage: TIME: 20:00
     Route: 042
     Dates: start: 20170812

REACTIONS (4)
  - Hypokalaemia [Unknown]
  - Ejection fraction decreased [Unknown]
  - Febrile neutropenia [Unknown]
  - Neutropenia [Unknown]

NARRATIVE: CASE EVENT DATE: 20170818
